FAERS Safety Report 7514432-6 (Version None)
Quarter: 2011Q2

REPORT INFORMATION
  Report Type: 
  Country: None (occurrence: None)
  Receive Date: 20110601
  Receipt Date: 20110523
  Transmission Date: 20111010
  Serious: Yes (Other)
  Sender: FDA-Public Use
  Company Number: US-JNJFOC-20110510566

PATIENT
  Age: 43 Year
  Sex: Female

DRUGS (4)
  1. NORCO [Concomitant]
     Indication: BREAKTHROUGH PAIN
     Dosage: 10-325 MG
     Route: 048
     Dates: start: 20010101
  2. ADVIL LIQUI-GELS [Concomitant]
     Indication: BREAKTHROUGH PAIN
     Dosage: SEVERAL TIMES A DAY
     Route: 048
     Dates: start: 19810101
  3. DURAGESIC-100 [Suspect]
     Route: 062
     Dates: start: 20110516
  4. DURAGESIC-100 [Suspect]
     Indication: BACK PAIN
     Route: 062
     Dates: start: 20110502, end: 20110516

REACTIONS (4)
  - VOMITING [None]
  - PAIN [None]
  - WRONG TECHNIQUE IN DRUG USAGE PROCESS [None]
  - WEIGHT DECREASED [None]
